FAERS Safety Report 8507491 (Version 3)
Quarter: 2012Q4

REPORT INFORMATION
  Report Type: 
  Country: US (occurrence: US)
  Receive Date: 20120412
  Receipt Date: 20121008
  Transmission Date: 20130627
  Serious: No
  Sender: FDA-Public Use
  Company Number: US-ASTRAZENECA-2011SE47810

PATIENT
  Age: 10 Year
  Sex: Male

DRUGS (2)
  1. NEXIUM [Suspect]
     Route: 048
  2. PRILOSEC [Suspect]
     Route: 048

REACTIONS (9)
  - Sleep disorder due to general medical condition, insomnia type [Unknown]
  - Gastrooesophageal reflux disease [Unknown]
  - Crohn^s disease [Unknown]
  - Haemorrhage [Unknown]
  - Vomiting [Unknown]
  - Abdominal pain upper [Unknown]
  - Drug dose omission [Unknown]
  - Drug ineffective [Unknown]
  - Therapeutic response unexpected [Unknown]
